FAERS Safety Report 9705349 (Version 1)
Quarter: 2013Q4

REPORT INFORMATION
  Report Type: Other
  Country: IT (occurrence: IT)
  Receive Date: 20131122
  Receipt Date: 20131122
  Transmission Date: 20140711
  Serious: Yes (Other)
  Sender: FDA-Public Use
  Company Number: IT-BRISTOL-MYERS SQUIBB COMPANY-19838762

PATIENT
  Sex: 0

DRUGS (4)
  1. STAVUDINE [Suspect]
  2. LAMIVUDINE [Suspect]
  3. RITONAVIR [Suspect]
  4. LOPINAVIR [Suspect]

REACTIONS (3)
  - Genitalia external ambiguous [Unknown]
  - Duodenal atresia [Unknown]
  - Anal atresia [Unknown]
